FAERS Safety Report 21197240 (Version 1)
Quarter: 2022Q3

REPORT INFORMATION
  Report Type: Spontaneous
  Country: US (occurrence: US)
  Receive Date: 20220810
  Receipt Date: 20220810
  Transmission Date: 20221027
  Serious: Yes (Other)
  Sender: FDA-Public Use
  Company Number: US-PFIZER INC-PV202200039538

PATIENT
  Age: 62 Year
  Sex: Female

DRUGS (2)
  1. CELEBREX [Suspect]
     Active Substance: CELECOXIB
     Indication: Arthritis
     Dosage: UNK
     Route: 048
     Dates: start: 20210318
  2. CELEBREX [Suspect]
     Active Substance: CELECOXIB
     Indication: Arthralgia

REACTIONS (1)
  - Arthritis reactive [Unknown]

NARRATIVE: CASE EVENT DATE: 20220617
